FAERS Safety Report 21108797 (Version 1)
Quarter: 2022Q3

REPORT INFORMATION
  Report Type: Spontaneous
  Country: US (occurrence: US)
  Receive Date: 20220721
  Receipt Date: 20220721
  Transmission Date: 20221026
  Serious: Yes (Other)
  Sender: FDA-Public Use
  Company Number: US-SUN PHARMACEUTICAL INDUSTRIES LTD-2022R1-344979

PATIENT
  Age: 11 Year
  Sex: Female

DRUGS (2)
  1. FERROUS SULFATE [Suspect]
     Active Substance: FERROUS SULFATE
     Indication: Iron deficiency anaemia
     Dosage: 6 MILLIGRAM/KILOGRAM, DAILY
     Route: 048
  2. IRON [Suspect]
     Active Substance: IRON
     Indication: Iron deficiency anaemia
     Dosage: 1 MILLIGRAM/KILOGRAM, DAILY
     Route: 048

REACTIONS (2)
  - Therapy partial responder [Unknown]
  - Upper respiratory tract infection [Unknown]
